FAERS Safety Report 19040832 (Version 4)
Quarter: 2021Q2

REPORT INFORMATION
  Report Type: Spontaneous
  Country: JP (occurrence: JP)
  Receive Date: 20210323
  Receipt Date: 20210602
  Transmission Date: 20210717
  Serious: Yes (Hospitalization, Other)
  Sender: FDA-Public Use
  Company Number: JP-SA-2021SA092834

PATIENT
  Age: 75 Year
  Sex: Female
  Weight: 43.7 kg

DRUGS (7)
  1. PREDNISOLONE. [Concomitant]
     Active Substance: PREDNISOLONE
     Indication: RHEUMATOID ARTHRITIS
     Dosage: 5 MG, QD
     Route: 048
     Dates: start: 20201229, end: 20210227
  2. PREDNISOLONE. [Concomitant]
     Active Substance: PREDNISOLONE
     Dosage: 5 TO 10 MG
     Route: 048
  3. SULFASALAZINE. [Suspect]
     Active Substance: SULFASALAZINE
     Indication: RHEUMATOID ARTHRITIS
     Dosage: 500 MG, BID
     Route: 048
     Dates: start: 20201229, end: 20210227
  4. KEVZARA [Suspect]
     Active Substance: SARILUMAB
     Indication: RHEUMATOID ARTHRITIS
     Dosage: 200 MG, 1X
     Route: 058
     Dates: start: 20210209, end: 20210209
  5. TRANEXAMIC ACID. [Concomitant]
     Active Substance: TRANEXAMIC ACID
     Indication: STOMATITIS
     Dosage: 250 MG, TID
     Route: 048
     Dates: start: 20210302, end: 20210307
  6. NEXIUM [Concomitant]
     Active Substance: ESOMEPRAZOLE MAGNESIUM
     Indication: GASTROOESOPHAGEAL REFLUX DISEASE
     Dosage: 200 MG, QD
     Route: 048
     Dates: start: 20210107, end: 20210227
  7. VITAMEDIN [BENFOTIAMINE;CYANOCOBALAMIN;PYRIDOXINE HYDROCHLORIDE] [Concomitant]
     Indication: PRODUCT USED FOR UNKNOWN INDICATION
     Dosage: UNK UNK, TID
     Route: 048
     Dates: start: 20210302, end: 20210307

REACTIONS (7)
  - Anal abscess [Recovered/Resolved]
  - Agranulocytosis [Recovered/Resolved]
  - Oral pain [Recovered/Resolved]
  - Proctalgia [Recovered/Resolved]
  - Mouth ulceration [Recovered/Resolved]
  - Sepsis [Recovered/Resolved]
  - Anal ulcer [Recovered/Resolved]

NARRATIVE: CASE EVENT DATE: 20210307
